FAERS Safety Report 5070227-7 (Version None)
Quarter: 2006Q3

REPORT INFORMATION
  Report Type: 
  Country: None (occurrence: None)
  Receive Date: 20060731
  Receipt Date: 20060724
  Transmission Date: 20061208
  Serious: Yes (Other)
  Sender: FDA-Public Use
  Company Number: OMPQ-NO-0607L-1229

PATIENT
  Age: 67 Year
  Sex: Female

DRUGS (1)
  1. OMNIPAQUE 140 [Suspect]
     Indication: DRUG USE FOR UNKNOWN INDICATION
     Dosage: SINGLE DOSE, I.A.
     Route: 013
     Dates: start: 19940101, end: 19940101

REACTIONS (3)
  - HYPOVOLAEMIC SHOCK [None]
  - INJECTION SITE HAEMORRHAGE [None]
  - MYOCARDIAL INFARCTION [None]
